FAERS Safety Report 7355201-X (Version None)
Quarter: 2011Q1

REPORT INFORMATION
  Report Type: 
  Country: None (occurrence: None)
  Receive Date: 20110316
  Receipt Date: 20110309
  Transmission Date: 20110831
  Serious: Yes (Other)
  Sender: FDA-Public Use
  Company Number: US-PFIZER INC-2011052242

PATIENT
  Sex: Male
  Weight: 80.726 kg

DRUGS (4)
  1. LYRICA [Suspect]
     Dosage: 75 MG, 2X/DAY
     Route: 048
     Dates: start: 20110201, end: 20110201
  2. LYRICA [Suspect]
     Indication: MULTIPLE SCLEROSIS
     Dosage: 75 MG, 1X/DAY
     Route: 048
     Dates: start: 20110201, end: 20110201
  3. LYRICA [Suspect]
     Dosage: 150 MG, 2X/DAY
     Route: 048
     Dates: start: 20110201
  4. NEURONTIN [Suspect]
     Indication: MULTIPLE SCLEROSIS
     Dosage: UNK

REACTIONS (7)
  - NECK PAIN [None]
  - ARTHRALGIA [None]
  - MYALGIA [None]
  - CHEST PAIN [None]
  - DRUG INEFFECTIVE [None]
  - WEIGHT INCREASED [None]
  - DYSPNOEA [None]
